FAERS Safety Report 14789202 (Version 2)
Quarter: 2018Q2

REPORT INFORMATION
  Report Type: Spontaneous
  Country: FR (occurrence: FR)
  Receive Date: 20180423
  Receipt Date: 20180517
  Transmission Date: 20180711
  Serious: Yes (Life-Threatening, Hospitalization)
  Sender: FDA-Public Use
  Company Number: PHHY2018FR070914

PATIENT
  Age: 81 Year
  Sex: Male

DRUGS (1)
  1. ENTRESTO [Suspect]
     Active Substance: SACUBITRIL\VALSARTAN
     Indication: MYOCARDIAL ISCHAEMIA
     Dosage: 200 MG (97/103 MG), UNK
     Route: 065

REACTIONS (4)
  - Cardiac failure [Unknown]
  - Acute pulmonary oedema [Unknown]
  - Product use in unapproved indication [Unknown]
  - Sepsis [Unknown]
